FAERS Safety Report 6567361-9 (Version None)
Quarter: 2010Q1

REPORT INFORMATION
  Report Type: 
  Country: None (occurrence: None)
  Receive Date: 20100202
  Receipt Date: 20100127
  Transmission Date: 20100710
  Serious: Yes (Hospitalization)
  Sender: FDA-Public Use
  Company Number: PHHO2009JP05360

PATIENT
  Sex: Female
  Weight: 76 kg

DRUGS (4)
  1. AMN107 AMN+CAP [Suspect]
     Indication: GASTROINTESTINAL STROMAL TUMOUR
     Dosage: 800 MG, BID
     Route: 048
     Dates: start: 20090219, end: 20090224
  2. AMN107 AMN+CAP [Suspect]
     Dosage: 400 MG, QD
     Route: 048
     Dates: start: 20090225, end: 20090225
  3. AMN107 AMN+CAP [Suspect]
     Dosage: NO TREATMENT
     Dates: start: 20090226, end: 20090302
  4. AMN107 AMN+CAP [Suspect]
     Dosage: 400 MG, QD
     Route: 048
     Dates: start: 20090303, end: 20090422

REACTIONS (2)
  - ABDOMINAL PAIN [None]
  - TUMOUR HAEMORRHAGE [None]
